FAERS Safety Report 6047109-7 (Version None)
Quarter: 2009Q1

REPORT INFORMATION
  Report Type: 
  Country: None (occurrence: None)
  Receive Date: 20090122
  Receipt Date: 20090115
  Transmission Date: 20090719
  Serious: Yes (Hospitalization)
  Sender: FDA-Public Use
  Company Number: FR-ASTRAZENECA-2009CG00206

PATIENT
  Age: 29337 Day
  Sex: Female

DRUGS (3)
  1. CRESTOR [Suspect]
     Route: 048
     Dates: start: 20061105, end: 20061108
  2. PREVISCAN [Suspect]
     Indication: ISCHAEMIC STROKE
     Route: 048
     Dates: start: 20061106, end: 20061108
  3. HEPARIN [Concomitant]
     Indication: ISCHAEMIC STROKE
     Route: 042

REACTIONS (1)
  - TOXIC SKIN ERUPTION [None]
